FAERS Safety Report 26065696 (Version 1)
Quarter: 2025Q4

REPORT INFORMATION
  Report Type: Spontaneous
  Country: EU (occurrence: EU)
  Receive Date: 20251119
  Receipt Date: 20251119
  Transmission Date: 20260117
  Serious: Yes (Other)
  Sender: ASCENDIS PHARMA
  Company Number: EU-ASCENDIS PHARMA-2025EU013170

PATIENT

DRUGS (13)
  1. YORVIPATH [Suspect]
     Active Substance: PALOPEGTERIPARATIDE
     Indication: Hypoparathyroidism
     Dosage: 9 MICROGRAM, QD
     Route: 058
     Dates: start: 20250916
  2. TACROLIMUS [Concomitant]
     Active Substance: TACROLIMUS
     Indication: Prophylaxis against transplant rejection
     Dosage: 10 MILLIGRAM, QD
     Route: 048
  3. CELLCEPT [Concomitant]
     Active Substance: MYCOPHENOLATE MOFETIL
     Indication: Prophylaxis against transplant rejection
     Dosage: 500 MG + 250 MG
     Route: 048
  4. DIFLUCAN [Concomitant]
     Active Substance: FLUCONAZOLE
     Indication: Infection prophylaxis
     Dosage: 50 MILLIGRAM, QD
     Route: 048
  5. HYDROCORTISONE [Concomitant]
     Active Substance: HYDROCORTISONE
     Indication: Addison^s disease
     Dosage: 35-70 MG, QD
     Route: 048
  6. LOSARTAN ORION [Concomitant]
     Indication: Hypertension
     Dosage: 50 MILLIGRAM, QD
     Route: 048
  7. STELLA [ZOLPIDEM TARTRATE] [Concomitant]
     Indication: Sleep disorder
     Dosage: 15 MILLIGRAM, QD (IN THE EVENING)
     Route: 048
  8. LEVOTHYROXINE [Concomitant]
     Active Substance: LEVOTHYROXINE
     Indication: Hypothyroidism
     Dosage: 25 MICROGRAM, QD
     Route: 048
  9. MIANSERIN [Concomitant]
     Active Substance: MIANSERIN
     Indication: Depression
     Dosage: 10 MILLIGRAM, QD
     Route: 048
  10. VALDOXAN [Concomitant]
     Active Substance: AGOMELATINE
     Indication: Depression
     Dosage: 25 MILLIGRAM, QD, IN THE EVENINGS
     Route: 048
  11. MIRENA [Concomitant]
     Active Substance: LEVONORGESTREL
     Indication: Contraception
     Dosage: UNK
     Route: 015
  12. ARANESP [Concomitant]
     Active Substance: DARBEPOETIN ALFA
     Indication: Anaemia
     Dosage: 80 MICROGRAM, EVERY 10 DAYS
     Route: 058
  13. ESTRADIOL [Concomitant]
     Active Substance: ESTRADIOL
     Indication: Hypogonadism
     Dosage: 2 MILLIGRAM, QD
     Route: 062

REACTIONS (1)
  - Pelvic venous thrombosis [Recovering/Resolving]

NARRATIVE: CASE EVENT DATE: 20251104
